FAERS Safety Report 11124936 (Version 1)
Quarter: 2015Q2

REPORT INFORMATION
  Report Type: Spontaneous
  Country: GB (occurrence: GB)
  Receive Date: 20150520
  Receipt Date: 20150520
  Transmission Date: 20150821
  Serious: Yes (Other)
  Sender: FDA-Public Use
  Company Number: GB-ACTAVIS-2015-10015

PATIENT
  Age: 69 Year
  Sex: Female
  Weight: 58.2 kg

DRUGS (1)
  1. PACLITAXEL (UNKNOWN) [Suspect]
     Active Substance: PACLITAXEL
     Indication: BREAST CANCER
     Dosage: 144 MG, UNK
     Route: 042
     Dates: start: 20150422, end: 20150422

REACTIONS (3)
  - Extravasation [Recovered/Resolved]
  - Catheter site swelling [Recovered/Resolved]
  - Catheter site erythema [Recovered/Resolved]

NARRATIVE: CASE EVENT DATE: 20150422
